FAERS Safety Report 23202318 (Version 3)
Quarter: 2024Q2

REPORT INFORMATION
  Report Type: Spontaneous
  Country: HR (occurrence: HR)
  Receive Date: 20231120
  Receipt Date: 20240408
  Transmission Date: 20240715
  Serious: Yes (Death, Hospitalization, Other)
  Sender: FDA-Public Use
  Company Number: HR-IMMUNOCORE, LTD-2023-IMC-001987

PATIENT

DRUGS (7)
  1. TEBENTAFUSP [Suspect]
     Active Substance: TEBENTAFUSP
     Indication: Uveal melanoma
     Dosage: DOSE 1
     Dates: start: 20230522
  2. TEBENTAFUSP [Suspect]
     Active Substance: TEBENTAFUSP
     Dosage: DOSE 2
  3. TEBENTAFUSP [Suspect]
     Active Substance: TEBENTAFUSP
     Dosage: DOSE 3 THROUGH 5
  4. TEBENTAFUSP [Suspect]
     Active Substance: TEBENTAFUSP
     Dosage: DOSE 6 THROUGH DOSE 14
  5. TEBENTAFUSP [Suspect]
     Active Substance: TEBENTAFUSP
     Dosage: DOSE 15 THROUGH DOSE 21
  6. TEBENTAFUSP [Suspect]
     Active Substance: TEBENTAFUSP
     Dosage: UNK, SINGLE, DOSE 19
  7. TEBENTAFUSP [Suspect]
     Active Substance: TEBENTAFUSP
     Dosage: UNK
     Dates: end: 20231027

REACTIONS (11)
  - Disease progression [Fatal]
  - Epilepsy [Unknown]
  - Cytokine release syndrome [Recovering/Resolving]
  - Blood lactate dehydrogenase increased [Unknown]
  - Neurological decompensation [Unknown]
  - Myoclonus [Unknown]
  - Rash pruritic [Unknown]
  - Abdominal pain [Recovering/Resolving]
  - Asthenia [Unknown]
  - Hypotension [Recovering/Resolving]
  - Pyrexia [Recovering/Resolving]

NARRATIVE: CASE EVENT DATE: 20230901
